FAERS Safety Report 6264039-6 (Version None)
Quarter: 2009Q3

REPORT INFORMATION
  Report Type: 
  Country: None (occurrence: None)
  Receive Date: 20090710
  Receipt Date: 20090626
  Transmission Date: 20100115
  Serious: Yes (Hospitalization)
  Sender: FDA-Public Use
  Company Number: PHHY2009FR27633

PATIENT
  Age: 65 Year
  Sex: Female

DRUGS (4)
  1. NISIS [Suspect]
     Indication: HYPERTENSION
     Dosage: 160 MG DAILY
     Dates: end: 20081201
  2. NISIS [Suspect]
     Dosage: 80 MG DAILY
     Dates: start: 20081201
  3. NISIS [Suspect]
     Dosage: 20 MG DAILY
  4. FLUDEX [Concomitant]
     Indication: HYPERTENSION
     Dosage: UNK

REACTIONS (5)
  - AMNESIA [None]
  - FALL [None]
  - HAEMATOMA [None]
  - LOSS OF CONSCIOUSNESS [None]
  - WOUND [None]
